FAERS Safety Report 7248148-0 (Version None)
Quarter: 2011Q1

REPORT INFORMATION
  Report Type: 
  Country: None (occurrence: None)
  Receive Date: 20110127
  Receipt Date: 20100416
  Transmission Date: 20110831
  Serious: Yes (Death, Other)
  Sender: FDA-Public Use
  Company Number: US-BAYER-201012706NA

PATIENT
  Sex: Female

DRUGS (3)
  1. UNCODEABLE ^UNCLASSIFIABLE^ [Concomitant]
     Indication: HYPERSENSITIVITY
  2. YAZ [Suspect]
     Indication: CONTRACEPTION
     Route: 048
     Dates: start: 20080623, end: 20090128
  3. SINUSTAB [Concomitant]

REACTIONS (17)
  - PULMONARY EMBOLISM [None]
  - BRONCHITIS [None]
  - HEADACHE [None]
  - DYSPNOEA [None]
  - DIZZINESS [None]
  - PALPITATIONS [None]
  - PULSE ABSENT [None]
  - COAGULOPATHY [None]
  - HAEMOPTYSIS [None]
  - PAIN IN EXTREMITY [None]
  - PRODUCTIVE COUGH [None]
  - RENAL FAILURE [None]
  - COUGH [None]
  - DEEP VEIN THROMBOSIS [None]
  - RESPIRATORY ARREST [None]
  - CARDIO-RESPIRATORY ARREST [None]
  - THROMBOCYTOPENIA [None]
